FAERS Safety Report 26123256 (Version 1)
Quarter: 2025Q4

REPORT INFORMATION
  Report Type: Spontaneous
  Country: JP (occurrence: JP)
  Receive Date: 20251204
  Receipt Date: 20251204
  Transmission Date: 20260118
  Serious: Yes (Hospitalization, Other)
  Sender: TAKEDA
  Company Number: JP-TAKEDA-2025TJP012306

PATIENT
  Age: 7 Decade

DRUGS (2)
  1. FRUZAQLA [Suspect]
     Active Substance: FRUQUINTINIB
     Indication: Product used for unknown indication
     Dosage: UNK
  2. FRUZAQLA [Suspect]
     Active Substance: FRUQUINTINIB
     Dosage: UNK

REACTIONS (2)
  - Post infection glomerulonephritis [Recovering/Resolving]
  - Nasopharyngitis [Recovered/Resolved]
